FAERS Safety Report 13420561 (Version 4)
Quarter: 2018Q1

REPORT INFORMATION
  Report Type: Report from Study
  Country: US (occurrence: US)
  Receive Date: 20170408
  Receipt Date: 20180208
  Transmission Date: 20180508
  Serious: No
  Sender: FDA-Public Use
  Company Number: GXBR2017US001159

PATIENT
  Age: 28 Year
  Sex: Female
  Weight: 94.37 kg

DRUGS (2)
  1. GLATOPA [Suspect]
     Active Substance: GLATIRAMER ACETATE
     Indication: MULTIPLE SCLEROSIS
     Dosage: 20 MG, QD
     Route: 058
     Dates: start: 20170315
  2. GLATOPA [Suspect]
     Active Substance: GLATIRAMER ACETATE
     Dosage: 20 MG, QD
     Route: 058

REACTIONS (10)
  - Injection site warmth [Recovered/Resolved]
  - Flushing [Recovering/Resolving]
  - Dizziness [Recovered/Resolved]
  - Injection site dryness [Unknown]
  - Feeling abnormal [Recovering/Resolving]
  - Injection site pruritus [Unknown]
  - Nausea [Recovering/Resolving]
  - Injection site mass [Not Recovered/Not Resolved]
  - Injection site haemorrhage [Unknown]
  - Injection site scar [Not Recovered/Not Resolved]

NARRATIVE: CASE EVENT DATE: 20170315
